FAERS Safety Report 10901751 (Version 1)
Quarter: 2015Q1

REPORT INFORMATION
  Report Type: Spontaneous
  Country: US (occurrence: None)
  Receive Date: 20150303
  Receipt Date: 20150303
  Transmission Date: 20150721
  Serious: No
  Sender: FDA-Public Use
  Company Number: None

PATIENT
  Age: 61 Year
  Sex: Female
  Weight: 55.34 kg

DRUGS (2)
  1. CBD OIL [Concomitant]
  2. CBD DROPS 200MG, 30ML SOOTHEEN [Suspect]
     Active Substance: CANNABIS SATIVA SEED OIL
     Indication: INFLAMMATION
     Route: 048
     Dates: start: 20150216, end: 20150227

REACTIONS (1)
  - Product label issue [None]

NARRATIVE: CASE EVENT DATE: 20150228
